FAERS Safety Report 17261568 (Version 1)
Quarter: 2019Q4

REPORT INFORMATION
  Report Type: Spontaneous
  Country: US (occurrence: US)
  Receive Date: 20191217
  Receipt Date: 20191217
  Transmission Date: 20200122
  Serious: Yes (Hospitalization)
  Sender: FDA-Public Use
  Company Number: None

PATIENT
  Age: 56 Year
  Sex: Female
  Weight: 142 kg

DRUGS (1)
  1. PERTUZUMAB. [Suspect]
     Active Substance: PERTUZUMAB
     Indication: BREAST CANCER METASTATIC
     Route: 042
     Dates: start: 20190910, end: 20190910

REACTIONS (8)
  - Nausea [None]
  - Abdominal pain [None]
  - Vomiting [None]
  - Dyspnoea [None]
  - Chest discomfort [None]
  - Erythema [None]
  - Respiratory depression [None]
  - Anaphylactic reaction [None]

NARRATIVE: CASE EVENT DATE: 20190910
